FAERS Safety Report 20306373 (Version 3)
Quarter: 2022Q2

REPORT INFORMATION
  Report Type: Spontaneous
  Country: US (occurrence: US)
  Receive Date: 20220106
  Receipt Date: 20220524
  Transmission Date: 20220721
  Serious: Yes (Hospitalization)
  Sender: FDA-Public Use
  Company Number: US-Vifor (International) Inc.-VIT-2022-00053

PATIENT
  Age: 83 Year
  Sex: Male
  Weight: 56 kg

DRUGS (7)
  1. VELTASSA [Suspect]
     Active Substance: PATIROMER
     Indication: Blood potassium increased
     Route: 048
     Dates: end: 20211215
  2. XULTOPHY 100/3.6 [Concomitant]
     Active Substance: INSULIN DEGLUDEC\LIRAGLUTIDE
     Indication: Diabetes mellitus
  3. TOPAMAX [Concomitant]
     Active Substance: TOPIRAMATE
  4. CALCIUM CARBONATE [Concomitant]
     Active Substance: CALCIUM CARBONATE
  5. DULOXETINE [Concomitant]
     Active Substance: DULOXETINE
  6. DUTASTERIDE [Concomitant]
     Active Substance: DUTASTERIDE
  7. TAMSULOSIN [Concomitant]
     Active Substance: TAMSULOSIN

REACTIONS (6)
  - Fall [Unknown]
  - Limb injury [Unknown]
  - Contusion [Unknown]
  - Rash [Unknown]
  - Tremor [Unknown]
  - Diarrhoea [Unknown]

NARRATIVE: CASE EVENT DATE: 20210101
